FAERS Safety Report 18047027 (Version 1)
Quarter: 2020Q3

REPORT INFORMATION
  Report Type: Spontaneous
  Country: US (occurrence: US)
  Receive Date: 20200720
  Receipt Date: 20200720
  Transmission Date: 20201103
  Serious: No
  Sender: FDA-Public Use
  Company Number: US-ROCHE-2359870

PATIENT
  Sex: Male

DRUGS (10)
  1. PEPCID AC [Concomitant]
     Active Substance: FAMOTIDINE
  2. TECENTRIQ [Suspect]
     Active Substance: ATEZOLIZUMAB
     Indication: SMALL CELL LUNG CANCER
     Route: 042
     Dates: start: 20190708
  3. ALOXI [Concomitant]
     Active Substance: PALONOSETRON HYDROCHLORIDE
     Dosage: UNKNOWN
     Dates: start: 20190708
  4. CLARITIN?D NOS [Concomitant]
     Active Substance: LORATADINE\PSEUDOEPHEDRINE SULFATE
  5. INSULIN [Concomitant]
     Active Substance: INSULIN NOS
  6. ALOE VERA [Concomitant]
     Active Substance: ALOE VERA LEAF
     Route: 061
     Dates: start: 20190713
  7. CARBOPLATIN. [Concomitant]
     Active Substance: CARBOPLATIN
     Indication: SMALL CELL LUNG CANCER
  8. ETOPOSIDE. [Concomitant]
     Active Substance: ETOPOSIDE
     Indication: SMALL CELL LUNG CANCER
  9. DECADRON [Concomitant]
     Active Substance: DEXAMETHASONE
     Dates: start: 20190708
  10. CINVANTI [Concomitant]
     Active Substance: APREPITANT
     Dates: start: 20190708

REACTIONS (4)
  - Blister [Recovering/Resolving]
  - Rash [Not Recovered/Not Resolved]
  - Hyperaesthesia [Recovering/Resolving]
  - Skin burning sensation [Not Recovered/Not Resolved]

NARRATIVE: CASE EVENT DATE: 20190712
